FAERS Safety Report 6849815-0 (Version None)
Quarter: 2010Q3

REPORT INFORMATION
  Report Type: 
  Country: None (occurrence: None)
  Receive Date: 20100716
  Receipt Date: 20080421
  Transmission Date: 20110219
  Serious: Yes (Other)
  Sender: FDA-Public Use
  Company Number: US-PFIZER INC-2007083758

PATIENT
  Sex: Female
  Weight: 40.9 kg

DRUGS (12)
  1. CHANTIX [Suspect]
     Indication: SMOKING CESSATION THERAPY
     Route: 048
     Dates: start: 20070929, end: 20080102
  2. PLAVIX [Concomitant]
     Route: 048
  3. VALIUM [Concomitant]
     Route: 048
  4. CARDIZEM CD [Concomitant]
     Route: 048
  5. DESYREL [Concomitant]
     Route: 048
  6. VICODIN [Concomitant]
     Route: 048
  7. LIDOCAINE [Concomitant]
  8. NEURONTIN [Concomitant]
  9. ZOLPIDEM TARTRATE [Concomitant]
  10. VALSARTAN [Concomitant]
  11. ALBUTEROL [Concomitant]
     Indication: CHRONIC OBSTRUCTIVE PULMONARY DISEASE
  12. ALL OTHER THERAPEUTIC PRODUCTS [Concomitant]

REACTIONS (7)
  - ABNORMAL DREAMS [None]
  - ACTIVITIES OF DAILY LIVING IMPAIRED [None]
  - DRUG INEFFECTIVE [None]
  - FATIGUE [None]
  - FEELING ABNORMAL [None]
  - INSOMNIA [None]
  - NAUSEA [None]
